FAERS Safety Report 7905874-5 (Version None)
Quarter: 2011Q4

REPORT INFORMATION
  Report Type: 
  Country: None (occurrence: None)
  Receive Date: 20111108
  Receipt Date: 20111026
  Transmission Date: 20120403
  Serious: Yes (Hospitalization, Other)
  Sender: FDA-Public Use
  Company Number: 2011MA015932

PATIENT
  Age: 43 Year
  Sex: Male

DRUGS (20)
  1. ALLOPURINOL [Suspect]
     Dates: start: 20060927, end: 20061101
  2. ZOLPIDEM [Suspect]
     Dates: start: 20060927, end: 20061101
  3. FLUVOXAMINE MALEATE [Suspect]
     Indication: MENTAL DISORDER
     Dosage: 100 MG;QAM;
     Dates: end: 20061001
  4. AZTREONAM [Suspect]
     Indication: PYREXIA
     Dates: start: 20060927, end: 20061101
  5. IPRATROPIUM BROMIDE AND ALBUTEROL SULFATE [Suspect]
     Dates: start: 20060927, end: 20061101
  6. FLUTICASONE PROPIONATE/SALMETEROL [Suspect]
     Dates: start: 20060927, end: 20061101
  7. ARSENIC TRIOXIDE [Suspect]
     Indication: ACUTE PROMYELOCYTIC LEUKAEMIA
     Dosage: 0.15 MG/KG; INFUSED OVER 2HR;IV
     Route: 042
     Dates: start: 20060929, end: 20061118
  8. ALPRAZOLAM [Concomitant]
  9. ACYCLOVIR [Suspect]
     Indication: PYREXIA
     Dates: start: 20060927, end: 20061101
  10. VANCOMYCIN [Suspect]
     Indication: PYREXIA
     Dates: start: 20060927, end: 20061101
  11. LINEZOLID [Suspect]
     Indication: PYREXIA
     Dates: start: 20060927, end: 20061101
  12. DOCUSATE [Suspect]
     Dates: start: 20060927, end: 20061101
  13. FLUTICASONE PROPIONATE [Suspect]
     Dates: start: 20060927, end: 20061101
  14. OXYCODONE HCL [Suspect]
     Dates: start: 20060927, end: 20061101
  15. ESOMEPRAZOLE [Suspect]
     Dates: start: 20060927, end: 20061101
  16. LORAZEPAM [Concomitant]
  17. VERAPAMIL [Suspect]
     Dates: start: 20060927, end: 20061101
  18. FLUCONAZOLE [Suspect]
     Indication: PYREXIA
     Dates: start: 20060927, end: 20061101
  19. CALCIUM ACETATE [Suspect]
     Dates: start: 20060927, end: 20061101
  20. POTASSIUM CHLORIDE [Suspect]
     Dates: start: 20060927, end: 20061101

REACTIONS (18)
  - ELECTROCARDIOGRAM QT PROLONGED [None]
  - LABORATORY TEST INTERFERENCE [None]
  - DRUG WITHDRAWAL SYNDROME [None]
  - HYPERHIDROSIS [None]
  - ANXIETY [None]
  - CONDITION AGGRAVATED [None]
  - OBSESSIVE THOUGHTS [None]
  - AFFECTIVE DISORDER [None]
  - ACUTE PROMYELOCYTIC LEUKAEMIA [None]
  - CHILLS [None]
  - PYREXIA [None]
  - STAPHYLOCOCCUS TEST POSITIVE [None]
  - RECURRENT CANCER [None]
  - DISSEMINATED INTRAVASCULAR COAGULATION [None]
  - INFUSION RELATED REACTION [None]
  - TREMOR [None]
  - NEGATIVISM [None]
  - DEPRESSION [None]
